FAERS Safety Report 24836591 (Version 1)
Quarter: 2025Q1

REPORT INFORMATION
  Report Type: Spontaneous
  Country: GB (occurrence: GB)
  Receive Date: 20250113
  Receipt Date: 20250113
  Transmission Date: 20250408
  Serious: Yes (Hospitalization)
  Sender: MYLAN
  Company Number: GB-MYLANLABS-2025M1001706

PATIENT
  Age: 4 Decade
  Sex: Female

DRUGS (25)
  1. CIPROFLOXACIN [Suspect]
     Active Substance: CIPROFLOXACIN
     Indication: Mycobacterium abscessus infection
     Dosage: 500 MILLIGRAM, BID
     Route: 048
  2. CIPROFLOXACIN [Suspect]
     Active Substance: CIPROFLOXACIN
     Indication: Endocarditis bacterial
  3. TIGECYCLINE [Suspect]
     Active Substance: TIGECYCLINE
     Indication: Mycobacterium abscessus infection
     Dosage: 50 MILLIGRAM, BID
     Route: 042
  4. TIGECYCLINE [Suspect]
     Active Substance: TIGECYCLINE
     Indication: Endocarditis bacterial
  5. SULFAMETHOXAZOLE\TRIMETHOPRIM [Suspect]
     Active Substance: SULFAMETHOXAZOLE\TRIMETHOPRIM
     Indication: Mycobacterium abscessus infection
     Dosage: UNK, QW
     Route: 065
  6. SULFAMETHOXAZOLE\TRIMETHOPRIM [Suspect]
     Active Substance: SULFAMETHOXAZOLE\TRIMETHOPRIM
     Indication: Endocarditis bacterial
  7. AMIKACIN [Concomitant]
     Active Substance: AMIKACIN
     Indication: Mycobacterium abscessus infection
     Dosage: 1.1 GRAM, QD
     Route: 042
  8. AMIKACIN [Concomitant]
     Active Substance: AMIKACIN
     Indication: Endocarditis bacterial
     Dosage: 1.1 GRAM, MONTHLY, RECEIVED THREE TIMES A WEEK
     Route: 042
  9. AZITHROMYCIN [Concomitant]
     Active Substance: AZITHROMYCIN
     Indication: Mycobacterium abscessus infection
     Dosage: 500 MILLIGRAM, QD
     Route: 048
  10. AZITHROMYCIN [Concomitant]
     Active Substance: AZITHROMYCIN
     Indication: Endocarditis bacterial
     Route: 048
  11. LINEZOLID [Concomitant]
     Active Substance: LINEZOLID
     Indication: Mycobacterium abscessus infection
     Dosage: 600 MILLIGRAM, QD
     Route: 048
  12. LINEZOLID [Concomitant]
     Active Substance: LINEZOLID
     Indication: Endocarditis bacterial
     Dosage: 300 MILLIGRAM, QD, RECEIVED AT LOW DOSE
     Route: 048
  13. LINEZOLID [Concomitant]
     Active Substance: LINEZOLID
     Route: 048
  14. CEFOXITIN [Concomitant]
     Active Substance: CEFOXITIN SODIUM
     Indication: Mycobacterium abscessus infection
     Dosage: 2 GRAM, TID (RECEIVED THREE TIMES A DAY)
     Route: 042
  15. CEFOXITIN [Concomitant]
     Active Substance: CEFOXITIN SODIUM
     Indication: Endocarditis bacterial
     Dosage: 2 GRAM, TID (RECEIVED THREE TIMES A DAY; DOSE RESTARTED)
     Route: 042
  16. CLOFAZIMINE [Concomitant]
     Active Substance: CLOFAZIMINE
     Indication: Mycobacterium abscessus infection
     Dosage: 200 MILLIGRAM, QD
     Route: 048
  17. CLOFAZIMINE [Concomitant]
     Active Substance: CLOFAZIMINE
     Indication: Endocarditis bacterial
     Dosage: 200 MILLIGRAM, QD, DOSE RESTARTED
     Route: 048
  18. CLOFAZIMINE [Concomitant]
     Active Substance: CLOFAZIMINE
     Route: 048
  19. CLOFAZIMINE [Concomitant]
     Active Substance: CLOFAZIMINE
     Route: 048
  20. MEROPENEM [Concomitant]
     Active Substance: MEROPENEM
     Indication: Mycobacterium abscessus infection
     Route: 065
  21. MEROPENEM [Concomitant]
     Active Substance: MEROPENEM
     Indication: Endocarditis bacterial
  22. AVIBACTAM SODIUM\CEFTAZIDIME [Concomitant]
     Active Substance: AVIBACTAM SODIUM\CEFTAZIDIME
     Indication: Mycobacterium abscessus infection
     Dosage: 2.5 GRAM, TID (RECEIVED THREE TIMES A DAY)
     Route: 042
  23. AVIBACTAM SODIUM\CEFTAZIDIME [Concomitant]
     Active Substance: AVIBACTAM SODIUM\CEFTAZIDIME
     Indication: Endocarditis bacterial
  24. IMIPENEM AND CILASTATIN [Concomitant]
     Active Substance: CILASTATIN SODIUM\IMIPENEM
     Indication: Mycobacterium abscessus infection
     Dosage: 1 GRAM, BID
     Route: 042
  25. IMIPENEM AND CILASTATIN [Concomitant]
     Active Substance: CILASTATIN SODIUM\IMIPENEM
     Indication: Endocarditis bacterial
     Route: 042

REACTIONS (3)
  - Vomiting [Unknown]
  - Rash [Unknown]
  - Drug ineffective [Unknown]
